FAERS Safety Report 6837413-4 (Version None)
Quarter: 2010Q3

REPORT INFORMATION
  Report Type: 
  Country: None (occurrence: None)
  Receive Date: 20100713
  Receipt Date: 20070510
  Transmission Date: 20110219
  Serious: No
  Sender: FDA-Public Use
  Company Number: US-PFIZER INC-2007038689

PATIENT
  Sex: Male
  Weight: 70.454 kg

DRUGS (8)
  1. CHANTIX [Suspect]
     Indication: SMOKING CESSATION THERAPY
     Dates: start: 20070401, end: 20070401
  2. PLAVIX [Concomitant]
     Indication: CARDIAC FAILURE CONGESTIVE
  3. ATENOLOL [Concomitant]
     Indication: CARDIAC FAILURE CONGESTIVE
  4. LIPITOR [Concomitant]
     Indication: CARDIAC FAILURE CONGESTIVE
  5. ACETYLSALICYLIC ACID [Concomitant]
     Indication: CARDIAC FAILURE CONGESTIVE
  6. LOVAZA [Concomitant]
  7. MULTI-VITAMINS [Concomitant]
  8. ALTACE [Concomitant]

REACTIONS (1)
  - NAUSEA [None]
